FAERS Safety Report 6886242-4 (Version None)
Quarter: 2010Q3

REPORT INFORMATION
  Report Type: 
  Country: None (occurrence: None)
  Receive Date: 20100729
  Receipt Date: 20080714
  Transmission Date: 20110219
  Serious: No
  Sender: FDA-Public Use
  Company Number: US-PFIZER INC-2008044435

PATIENT
  Sex: Female
  Weight: 53.07 kg

DRUGS (6)
  1. CELEBREX [Suspect]
     Indication: BACK PAIN
     Route: 048
     Dates: start: 20080424, end: 20080501
  2. EFFEXOR XR [Concomitant]
  3. VALSARTAN [Concomitant]
  4. FOSAMAX [Concomitant]
  5. EFFEXOR [Concomitant]
  6. HYDROCODONE BITARTRATE [Concomitant]

REACTIONS (3)
  - DYSGEUSIA [None]
  - GLOSSODYNIA [None]
  - MOUTH ULCERATION [None]
